FAERS Safety Report 18991905 (Version 1)
Quarter: 2021Q1

REPORT INFORMATION
  Report Type: Spontaneous
  Country: US (occurrence: US)
  Receive Date: 20210310
  Receipt Date: 20210310
  Transmission Date: 20210420
  Serious: No
  Sender: FDA-Public Use
  Company Number: US-JNJFOC-20210306812

PATIENT
  Age: 68 Year
  Sex: Female

DRUGS (2)
  1. MINOXIDIL. [Concomitant]
     Active Substance: MINOXIDIL
     Indication: ALOPECIA
     Route: 065
  2. WOMENS ROGAINE UNSCENTED [Suspect]
     Active Substance: MINOXIDIL
     Indication: ALOPECIA
     Dosage: ONCE A DAY, AT NIGHT
     Route: 061

REACTIONS (2)
  - Alopecia [Not Recovered/Not Resolved]
  - Inappropriate schedule of product administration [Unknown]

NARRATIVE: CASE EVENT DATE: 20201101
